FAERS Safety Report 6497496-0 (Version None)
Quarter: 2009Q4

REPORT INFORMATION
  Report Type: 
  Country: None (occurrence: None)
  Receive Date: 20091211
  Receipt Date: 20091126
  Transmission Date: 20100525
  Serious: Yes (Other)
  Sender: FDA-Public Use
  Company Number: JP 2009 0045

PATIENT
  Age: 63 Year
  Sex: Male

DRUGS (10)
  1. OXILAN-300 [Suspect]
     Indication: ARTERIOGRAM CORONARY
     Dosage: 50 ML PER DAY INTRA-ARTERIAL
     Route: 013
     Dates: start: 20090911, end: 20090911
  2. BISOPROLOL FUMARATE [Suspect]
     Indication: ATRIAL FIBRILLATION
     Dosage: 2,5 MG PER DAY ORAL
     Route: 048
     Dates: start: 20091028
  3. LANIRAPID METILDIGOXIN [Suspect]
     Indication: ATRIAL FIBRILLATION
     Dosage: 0,1 MG PER DAY ORAL
     Route: 048
     Dates: start: 20090511
  4. WARFARIN SODIUM [Concomitant]
  5. LASIX [Concomitant]
  6. ALDCTONE [Concomitant]
  7. ZYLORIC [Concomitant]
  8. NITOROL [Concomitant]
  9. HEPARIN [Concomitant]
  10. EPADEL [Concomitant]

REACTIONS (2)
  - HYPOTENSION [None]
  - SHOCK [None]
